FAERS Safety Report 19890173 (Version 1)
Quarter: 2021Q3

REPORT INFORMATION
  Report Type: Report from Study
  Country: CA (occurrence: CA)
  Receive Date: 20210928
  Receipt Date: 20210928
  Transmission Date: 20211014
  Serious: Yes (Death, Other)
  Sender: FDA-Public Use
  Company Number: CA-ORION CORPORATION ORION PHARMA-21_00015946

PATIENT
  Age: 45 Year
  Sex: Male

DRUGS (8)
  1. METHOTREXATE (TRADE NAME UNKNOWN) [Suspect]
     Active Substance: METHOTREXATE
     Indication: PRODUCT USED FOR UNKNOWN INDICATION
     Route: 048
  2. CELEBREX [Concomitant]
     Active Substance: CELECOXIB
     Route: 048
  3. COSENTYX [Suspect]
     Active Substance: SECUKINUMAB
     Indication: PSORIATIC ARTHROPATHY
     Route: 058
  4. COSENTYX [Suspect]
     Active Substance: SECUKINUMAB
     Route: 058
  5. METHOTREXATE (TRADE NAME UNKNOWN) [Suspect]
     Active Substance: METHOTREXATE
     Route: 048
  6. COSENTYX [Suspect]
     Active Substance: SECUKINUMAB
     Route: 058
  7. CYANOCOBALAMIN. [Concomitant]
     Active Substance: CYANOCOBALAMIN
     Route: 048
  8. CELEBREX [Concomitant]
     Active Substance: CELECOXIB
     Route: 048

REACTIONS (8)
  - Death [Fatal]
  - Nasopharyngitis [Unknown]
  - Arthritis [Fatal]
  - Incorrect dosage administered [Unknown]
  - Therapeutic response shortened [Unknown]
  - Psoriatic arthropathy [Unknown]
  - Transaminases increased [Unknown]
  - Psoriasis [Unknown]
